FAERS Safety Report 9306266 (Version 3)
Quarter: 2013Q3

REPORT INFORMATION
  Report Type: Spontaneous
  Country: BR (occurrence: BR)
  Receive Date: 20130523
  Receipt Date: 20130726
  Transmission Date: 20140515
  Serious: Yes (Hospitalization, Other)
  Sender: FDA-Public Use
  Company Number: BR-BAYER-2013-061838

PATIENT
  Age: 32 Year
  Sex: Female
  Weight: 100 kg

DRUGS (1)
  1. MIRENA [Suspect]
     Indication: CONTRACEPTION
     Dosage: 20 ?G, CONT
     Route: 015
     Dates: start: 20121011, end: 20130522

REACTIONS (10)
  - Anaphylactic shock [Recovered/Resolved]
  - Hypersensitivity [Not Recovered/Not Resolved]
  - Menorrhagia [Recovered/Resolved]
  - Acne [Recovering/Resolving]
  - Erythema [Recovered/Resolved]
  - Rash macular [Recovered/Resolved]
  - Dyspnoea [Recovered/Resolved]
  - Cyanosis [Recovered/Resolved]
  - Generalised erythema [Not Recovered/Not Resolved]
  - Menorrhagia [Recovered/Resolved]
